FAERS Safety Report 23382691 (Version 1)
Quarter: 2024Q1

REPORT INFORMATION
  Report Type: Spontaneous
  Country: AE (occurrence: AE)
  Receive Date: 20240109
  Receipt Date: 20240109
  Transmission Date: 20240410
  Serious: Yes (Other)
  Sender: FDA-Public Use
  Company Number: AE-PFIZER INC-PV202400001173

PATIENT
  Age: 42 Year
  Sex: Female

DRUGS (10)
  1. XELJANZ [Suspect]
     Active Substance: TOFACITINIB CITRATE
     Dosage: 5 MG, 2X/DAY
     Route: 048
  2. METHOTREXATE [Concomitant]
     Active Substance: METHOTREXATE
     Dosage: 20 MG, WEEKLY
     Route: 058
  3. PREDNISOLONE [Concomitant]
     Active Substance: PREDNISOLONE
     Dosage: 1 TABLET / DAILY
     Route: 048
  4. VITAMIN D3 [Concomitant]
     Active Substance: CHOLECALCIFEROL
     Dosage: 1 CAPSULE, MONTHLY
     Route: 048
  5. HYDROXYCHLOROQUINE [Concomitant]
     Active Substance: HYDROXYCHLOROQUINE
     Dosage: 1 TABLET, DAILY
     Route: 048
  6. CALTRATE + D [CALCIUM;ERGOCALCIFEROL] [Concomitant]
  7. DEXLANSOPRAZOLE [Concomitant]
     Active Substance: DEXLANSOPRAZOLE
     Dosage: 30 MG, DAILY
     Route: 048
  8. FOLIC ACID [Concomitant]
     Active Substance: FOLIC ACID
     Dosage: 5 MG, CYCLIC (THREE TIMES PER WEEK)
     Route: 048
  9. KETOPROFEN [Concomitant]
     Active Substance: KETOPROFEN
     Dosage: UNK, 2X/DAY
     Route: 061
  10. ETORICOXIB [Concomitant]
     Active Substance: ETORICOXIB
     Dosage: 90 MG, DAILY
     Route: 048

REACTIONS (9)
  - Type 2 diabetes mellitus [Unknown]
  - Synovitis [Unknown]
  - Tenosynovitis [Unknown]
  - C-reactive protein increased [Unknown]
  - Osteoporosis [Unknown]
  - Oropharyngeal pain [Unknown]
  - Hyperglycaemia [Unknown]
  - Blood glucose abnormal [Unknown]
  - Immunology test abnormal [Unknown]
